FAERS Safety Report 12180251 (Version 2)
Quarter: 2016Q1

REPORT INFORMATION
  Report Type: Report from Study
  Country: US (occurrence: US)
  Receive Date: 20160315
  Receipt Date: 20160318
  Transmission Date: 20160526
  Serious: No
  Sender: FDA-Public Use
  Company Number: PHEH2016US006066

PATIENT
  Sex: Female

DRUGS (4)
  1. ILARIS [Suspect]
     Active Substance: CANAKINUMAB
     Indication: PRODUCT USED FOR UNKNOWN INDICATION
     Dosage: 180 MG, EVERY 8 WEEKS
     Route: 058
  2. HYDROXYZINE [Concomitant]
     Active Substance: HYDROXYZINE\HYDROXYZINE HYDROCHLORIDE
     Indication: PAIN
     Route: 065
  3. BUSPAR [Concomitant]
     Active Substance: BUSPIRONE HYDROCHLORIDE
     Indication: PRODUCT USED FOR UNKNOWN INDICATION
     Route: 065
  4. SEROQUEL [Concomitant]
     Active Substance: QUETIAPINE FUMARATE
     Indication: PRODUCT USED FOR UNKNOWN INDICATION
     Route: 065

REACTIONS (14)
  - Rash [Unknown]
  - Ear pain [Unknown]
  - Urticaria [Unknown]
  - Headache [Unknown]
  - Chills [Unknown]
  - Pruritus [Unknown]
  - Dizziness [Unknown]
  - Abdominal discomfort [Unknown]
  - Chest discomfort [Unknown]
  - Sinus headache [Unknown]
  - Cough [Unknown]
  - Rhinorrhoea [Unknown]
  - Fibromyalgia [Unknown]
  - Weight increased [Unknown]
